FAERS Safety Report 8998572 (Version 3)
Quarter: 2013Q2

REPORT INFORMATION
  Report Type: Spontaneous
  Country: US (occurrence: US)
  Receive Date: 20130103
  Receipt Date: 20130503
  Transmission Date: 20140414
  Serious: Yes (Other)
  Sender: FDA-Public Use
  Company Number: US-AMGEN-USASP2012083900

PATIENT
  Age: 56 Year
  Sex: Female
  Weight: 62.59 kg

DRUGS (2)
  1. ENBREL [Suspect]
     Indication: RHEUMATOID ARTHRITIS
     Dosage: 50 MG, QWK
     Route: 058
     Dates: start: 200503, end: 20110126
  2. METHOTREXATE [Concomitant]
     Dosage: UNK
     Dates: end: 20110126

REACTIONS (1)
  - Breast cancer [Recovered/Resolved]
